FAERS Safety Report 15239249 (Version 1)
Quarter: 2018Q3

REPORT INFORMATION
  Report Type: Report from Study
  Country: CA (occurrence: CA)
  Receive Date: 20180803
  Receipt Date: 20180803
  Transmission Date: 20181010
  Serious: Yes (Other)
  Sender: FDA-Public Use
  Company Number: CA-JNJFOC-20180735725

PATIENT
  Age: 62 Year
  Sex: Male
  Weight: 98.6 kg

DRUGS (1)
  1. REMICADE [Suspect]
     Active Substance: INFLIXIMAB
     Indication: CROHN^S DISEASE
     Route: 042
     Dates: start: 20150326

REACTIONS (7)
  - Heart rate increased [Recovered/Resolved]
  - Throat irritation [Unknown]
  - Infusion related reaction [Recovering/Resolving]
  - Dyspnoea [Recovered/Resolved]
  - Skin discolouration [Unknown]
  - Blood pressure increased [Recovered/Resolved]
  - Oxygen saturation decreased [Recovered/Resolved]

NARRATIVE: CASE EVENT DATE: 20180726
